FAERS Safety Report 8402373-1 (Version None)
Quarter: 2012Q2

REPORT INFORMATION
  Report Type: 
  Country: None (occurrence: None)
  Receive Date: 20120529
  Receipt Date: 20090701
  Transmission Date: 20120825
  Serious: Yes (Death)
  Sender: FDA-Public Use
  Company Number: 006527

PATIENT
  Age: 71 Year
  Sex: Male
  Weight: 67 kg

DRUGS (16)
  1. LOSARTAN POTASSIUM [Concomitant]
  2. LASIX [Concomitant]
  3. PLETAL [Suspect]
     Indication: PERCUTANEOUS CORONARY INTERVENTION
     Dosage: 100 MG MILLIGRAM(S), BID; ORAL
     Route: 048
     Dates: start: 20090519, end: 20090609
  4. ISOSORBIDE MONONITRATE [Concomitant]
  5. ASPIRIN [Concomitant]
  6. ISOSORBIDE MONONITRATE [Concomitant]
  7. ASPIRIN [Concomitant]
  8. LASIX [Concomitant]
  9. NOVORAPID MIX (INSULIN ASPART (GENETICAL RECOMBINATION)) INJECTION [Concomitant]
  10. PLAVIX [Suspect]
     Dosage: 75 MG, QD; ORAL
     Route: 048
     Dates: start: 20090514, end: 20090518
  11. PLAVIX [Suspect]
     Dosage: 75 MG, QD; ORAL
     Route: 048
     Dates: start: 20090513, end: 20090513
  12. SIGMART (NICORANDIL) [Concomitant]
  13. LAMISIL [Suspect]
     Indication: TINEA INFECTION
     Dosage: 125 MG MILLIGRAM(S), QD;ORAL
     Route: 048
     Dates: start: 20090421, end: 20090522
  14. LANSOPRAZOLE [Concomitant]
  15. ALLOPURINOL [Concomitant]
  16. SELARA (EPLERENONE) TABLET [Concomitant]

REACTIONS (5)
  - RENAL FAILURE ACUTE [None]
  - CHOLESTASIS [None]
  - JAUNDICE [None]
  - MULTI-ORGAN FAILURE [None]
  - CARDIAC FAILURE [None]
